FAERS Safety Report 6002144-X (Version None)
Quarter: 2008Q4

REPORT INFORMATION
  Report Type: 
  Country: None (occurrence: None)
  Receive Date: 20081215
  Receipt Date: 20071109
  Transmission Date: 20090506
  Serious: No
  Sender: FDA-Public Use
  Company Number: US-AMGEN-KDL251943

PATIENT
  Sex: Female

DRUGS (5)
  1. ENBREL [Suspect]
     Indication: PSORIATIC ARTHROPATHY
     Route: 058
     Dates: start: 20070601
  2. ENBREL [Suspect]
     Indication: PSORIASIS
  3. ENBREL [Suspect]
     Indication: SYSTEMIC LUPUS ERYTHEMATOSUS
  4. ENBREL [Suspect]
     Indication: DRUG USE FOR UNKNOWN INDICATION
  5. METHOTREXATE [Concomitant]
     Dates: start: 20061001

REACTIONS (6)
  - ARTHRALGIA [None]
  - COLITIS ULCERATIVE [None]
  - NAUSEA [None]
  - PSORIASIS [None]
  - PSORIATIC ARTHROPATHY [None]
  - RECTAL HAEMORRHAGE [None]
